FAERS Safety Report 9215528 (Version 5)
Quarter: 2014Q1

REPORT INFORMATION
  Report Type: Report from Study
  Country: JP (occurrence: JP)
  Receive Date: 20130406
  Receipt Date: 20140203
  Transmission Date: 20141002
  Serious: Yes (Death)
  Sender: FDA-Public Use
  Company Number: JP-B.I. PHARMACEUTICALS,INC./RIDGEFIELD-2013-BI-08671NB

PATIENT
  Age: 84 Year
  Sex: Female
  Weight: 33.7 kg

DRUGS (6)
  1. MIRAPEX LA [Suspect]
     Indication: PARKINSON^S DISEASE
     Dosage: 1.5 MG
     Route: 048
     Dates: start: 20121117, end: 20130318
  2. NEODOPASTON/LEVODOPA_CARBIDOPA HYDRATE [Concomitant]
     Indication: PARKINSON^S DISEASE
     Dosage: 200 MG
     Route: 048
     Dates: end: 20130416
  3. SENNARIDE/SENNOSIDE [Concomitant]
     Indication: PARKINSON^S DISEASE
     Dosage: 12 MG
     Route: 048
     Dates: end: 20130416
  4. STANZOME/LANSOPRAZOLE [Concomitant]
     Indication: PROPHYLAXIS
     Dosage: 15 MG
     Route: 048
     Dates: end: 20130416
  5. FLUNITRAZEPAM/FLUNITRAZEPAM [Concomitant]
     Indication: PARKINSON^S DISEASE
     Dosage: 1 MG
     Route: 048
     Dates: end: 20130416
  6. BROTIZOLAM/BROTIZOLAM [Concomitant]
     Indication: PARKINSON^S DISEASE
     Dosage: 0.25 MG
     Route: 048
     Dates: end: 20130416

REACTIONS (2)
  - Disseminated intravascular coagulation [Fatal]
  - Pneumonia aspiration [Fatal]
